FAERS Safety Report 19584787 (Version 20)
Quarter: 2023Q2

REPORT INFORMATION
  Report Type: Report from Study
  Country: DE (occurrence: DE)
  Receive Date: 20210720
  Receipt Date: 20230621
  Transmission Date: 20230721
  Serious: Yes (Other)
  Sender: FDA-Public Use
  Company Number: DE-PFM-2021-06077

PATIENT
  Age: 49 Year
  Sex: Female

DRUGS (7)
  1. ENCORAFENIB [Suspect]
     Active Substance: ENCORAFENIB
     Indication: Metastatic malignant melanoma
     Dosage: 450 MG, 1X PER DAY
     Route: 048
     Dates: start: 20201023
  2. ENCORAFENIB [Suspect]
     Active Substance: ENCORAFENIB
     Dosage: 450 MG, QD (1/DAY)
     Route: 048
     Dates: start: 20201109, end: 20221231
  3. BINIMETINIB [Suspect]
     Active Substance: BINIMETINIB
     Indication: Metastatic malignant melanoma
     Dosage: 45 MG, BID (2/DAY)
     Route: 048
     Dates: start: 20201023
  4. BINIMETINIB [Suspect]
     Active Substance: BINIMETINIB
     Dosage: 45 MG, BID (2/DAY)
     Route: 048
     Dates: start: 20201109, end: 20221231
  5. MAGNESIUM [Concomitant]
     Active Substance: MAGNESIUM
     Indication: Metastatic malignant melanoma
     Dosage: UNK
     Route: 065
     Dates: start: 202006
  6. PANTOPRAZOLE SODIUM [Concomitant]
     Active Substance: PANTOPRAZOLE SODIUM
     Indication: Prophylaxis
     Dosage: UNK
     Route: 065
  7. CITALOPRAM [Concomitant]
     Active Substance: CITALOPRAM HYDROBROMIDE
     Indication: Depression
     Dosage: UNK
     Route: 065

REACTIONS (11)
  - Chronic kidney disease [Not Recovered/Not Resolved]
  - Hyperkalaemia [Recovered/Resolved]
  - Nausea [Recovered/Resolved]
  - Diarrhoea [Recovered/Resolved]
  - Vision blurred [Recovered/Resolved]
  - Fatigue [Recovered/Resolved]
  - Iron deficiency anaemia [Recovered/Resolved]
  - Back pain [Recovered/Resolved]
  - Oedema peripheral [Recovered/Resolved]
  - Blood creatine phosphokinase increased [Recovering/Resolving]
  - Abdominal pain [Recovered/Resolved]

NARRATIVE: CASE EVENT DATE: 20201109
